FAERS Safety Report 10433079 (Version 5)
Quarter: 2015Q3

REPORT INFORMATION
  Report Type: Spontaneous
  Country: FR (occurrence: FR)
  Receive Date: 20140905
  Receipt Date: 20150923
  Transmission Date: 20151125
  Serious: Yes (Hospitalization, Other)
  Sender: FDA-Public Use
  Company Number: FR-TEVA-504892ISR

PATIENT
  Age: 41 Year
  Sex: Female

DRUGS (27)
  1. ENDOXAN [Suspect]
     Active Substance: CYCLOPHOSPHAMIDE
     Dosage: 520 MILLIGRAM DAILY; HYPERCVAD CHEMOTHERAPY PROTOCOL
     Route: 041
     Dates: start: 20140607, end: 20140609
  2. DEPAKINE 500 MG LP [Concomitant]
     Dosage: 1 DOSAGE FORMS DAILY; IN THE EVENING, USUAL TREATMENT, ONGOING
     Route: 048
  3. LAROXYL [Concomitant]
     Active Substance: AMITRIPTYLINE
     Dosage: 15 DOSAGE FORMS DAILY; DOSAGE FORM: DROP, IN THE EVENING, USUAL TREATMENT
  4. METHOTREXATE (METHOTREXATE SODIUM) [Suspect]
     Active Substance: METHOTREXATE SODIUM
     Dosage: 15 MILLIGRAM DAILY; HYPERCVAD CHEMOTHERAPY PROTOCOL
     Route: 037
     Dates: start: 20140616, end: 20140701
  5. UROMITEXAN 200MG [Suspect]
     Active Substance: MESNA
     Dosage: 3 DOSAGE FORMS DAILY;
     Route: 041
     Dates: start: 20140607, end: 20140608
  6. DEXAMETHASONE MYLAN [Suspect]
     Active Substance: DEXAMETHASONE
     Dosage: 40 MILLIGRAM DAILY;
     Route: 042
     Dates: start: 20140607, end: 20140610
  7. METHYLPREDNISOLONE MYLAN [Suspect]
     Active Substance: METHYLPREDNISOLONE
     Dosage: 40 MILLIGRAM DAILY;
     Route: 037
     Dates: start: 20140616, end: 20140616
  8. AUGMENTIN [Suspect]
     Active Substance: AMOXICILLIN\CLAVULANATE POTASSIUM
     Dosage: 3 GRAM DAILY;
     Route: 048
     Dates: start: 20140623, end: 20140630
  9. TAZOCILLINE 4G/500MG [Suspect]
     Active Substance: PIPERACILLIN SODIUM\TAZOBACTAM SODIUM
     Dosage: 4 DOSAGE FORMS DAILY;
     Route: 041
     Dates: start: 20140615, end: 20140721
  10. INEXIUM 20 MG [Concomitant]
     Active Substance: ESOMEPRAZOLE
     Dosage: 40 MILLIGRAM DAILY; IN THE EVENING, USUAL TREATMENT
     Route: 048
  11. DOLIPRANE 1 GR [Concomitant]
     Dosage: 4 DOSAGE FORMS DAILY; USUAL TREATMENT
  12. VINCRISTINE TEVA [Suspect]
     Active Substance: VINCRISTINE
     Dosage: 2 MILLIGRAM DAILY; 1 CYCLE
     Route: 041
     Dates: start: 20140610, end: 20140610
  13. ARACYTINE [Suspect]
     Active Substance: CYTARABINE
     Dosage: 7000 MILLIGRAM DAILY; HYPERCVAD CHEMOTHERAPY PROTOCOL
     Route: 042
     Dates: start: 20140701, end: 20140723
  14. NOXAFIL [Suspect]
     Active Substance: POSACONAZOLE
     Dosage: 600 MILLIGRAM DAILY; USUAL TREATMENT
     Route: 048
     Dates: start: 20140607, end: 20140706
  15. LUTERAN [Suspect]
     Active Substance: CHLORMADINONE ACETATE
     Dosage: 1 DOSAGE FORMS DAILY; IN THE EVENING, USUAL TREATMENT, ONGOING
     Route: 048
     Dates: start: 201405
  16. PENTACARINAT [Suspect]
     Active Substance: PENTAMIDINE ISETHIONATE
     Route: 045
     Dates: start: 20140606, end: 20140606
  17. CYTARABINE EG [Suspect]
     Active Substance: CYTARABINE
     Route: 037
     Dates: start: 20140620, end: 20140620
  18. EXACYL [Suspect]
     Active Substance: TRANEXAMIC ACID
     Dosage: ONGOING
     Route: 048
     Dates: start: 201405
  19. ROCEPHINE 1G [Suspect]
     Active Substance: CEFTRIAXONE SODIUM
     Dosage: 1 GRAM DAILY;
     Route: 041
     Dates: start: 20140702, end: 20140713
  20. CYTARABINE EG [Suspect]
     Active Substance: CYTARABINE
     Dosage: 7000 MILLIGRAM DAILY;
     Route: 041
     Dates: start: 20140627, end: 20140630
  21. AMLOR 5 MG [Suspect]
     Active Substance: AMLODIPINE BESYLATE
     Dosage: 2 DOSAGE FORMS DAILY; IN THE MORNING AND IN THE EVENING, USUAL TREATMENT
     Route: 048
     Dates: start: 20140705
  22. IDARUBICINE MYLAN [Suspect]
     Active Substance: IDARUBICIN
     Dosage: 21 MILLIGRAM DAILY;
     Route: 041
     Dates: start: 20140627, end: 20140629
  23. DEXAMETHASONE MYLAN [Suspect]
     Active Substance: DEXAMETHASONE
     Dosage: 40 MILLIGRAM DAILY; HYPERCVAD CHEMOTHERAPY PROTOCOL
     Route: 042
     Dates: start: 20140617, end: 20140623
  24. METHOTREXATE BIODIM [Suspect]
     Active Substance: METHOTREXATE
     Dosage: 15 MILLIGRAM DAILY;
     Route: 037
     Dates: start: 20140616, end: 20140616
  25. VINCRISTINE TEVA [Suspect]
     Active Substance: VINCRISTINE
     Dosage: 2 MILLIGRAM DAILY; HYPERCVAD CHEMOTHERAPY PROTOCOL
     Route: 041
     Dates: start: 20140710, end: 20140718
  26. ZELITREX 500 MG [Suspect]
     Active Substance: VALACYCLOVIR HYDROCHLORIDE
     Dosage: 2 DOSAGE FORMS DAILY; IN THE MORNING AND IN THE EVENING, USUAL TREATMENT
     Route: 048
     Dates: start: 20140607, end: 20140706
  27. LEXOMIL 6 MG [Concomitant]

REACTIONS (8)
  - Axonal neuropathy [Not Recovered/Not Resolved]
  - Motor dysfunction [Unknown]
  - Asthenia [Unknown]
  - Paraesthesia [Unknown]
  - Muscle fatigue [Unknown]
  - Monoparesis [Unknown]
  - Balance disorder [Recovering/Resolving]
  - Neuralgia [Unknown]

NARRATIVE: CASE EVENT DATE: 20140715
